FAERS Safety Report 8959709 (Version 1)
Quarter: 2012Q4

REPORT INFORMATION
  Report Type: Report from Study
  Country: US (occurrence: US)
  Receive Date: 20121212
  Receipt Date: 20121212
  Transmission Date: 20130627
  Serious: Yes (Other)
  Sender: FDA-Public Use
  Company Number: US-US-EMD SERONO, INC.-7180527

PATIENT
  Sex: Male
  Weight: 64 kg

DRUGS (1)
  1. REBIF [Suspect]
     Indication: PRODUCT USED FOR UNKNOWN INDICATION
     Route: 058
     Dates: start: 20100527, end: 201210

REACTIONS (6)
  - Nephrolithiasis [Recovered/Resolved]
  - Meniscus injury [Recovered/Resolved]
  - Peroneal nerve palsy [Recovering/Resolving]
  - Gait disturbance [Not Recovered/Not Resolved]
  - Multiple sclerosis relapse [Not Recovered/Not Resolved]
  - Muscle spasticity [Recovering/Resolving]
